FAERS Safety Report 10638304 (Version 2)
Quarter: 2015Q1

REPORT INFORMATION
  Report Type: Report from Study
  Country: JP (occurrence: JP)
  Receive Date: 20141208
  Receipt Date: 20150209
  Transmission Date: 20150720
  Serious: Yes (Other)
  Sender: FDA-Public Use
  Company Number: JP-GLAXOSMITHKLINE-JP2014JPN030964

PATIENT
  Age: 61 Year
  Sex: Female
  Weight: 44 kg

DRUGS (30)
  1. PREDONINE [Concomitant]
     Active Substance: PREDNISOLONE\PREDNISOLONE ACETATE\PREDNISOLONE SODIUM SUCCINATE
     Dosage: 25 MG, QD
     Dates: start: 20140123, end: 20140129
  2. PENTASA [Concomitant]
     Active Substance: MESALAMINE
     Indication: COLITIS ULCERATIVE
     Dosage: 2000 MG, BID
     Route: 048
     Dates: start: 20130929
  3. MEVALOTIN [Concomitant]
     Active Substance: PRAVASTATIN SODIUM
     Dosage: 5 MG, QD
     Route: 048
     Dates: start: 20130925
  4. PREDONINE [Concomitant]
     Active Substance: PREDNISOLONE\PREDNISOLONE ACETATE\PREDNISOLONE SODIUM SUCCINATE
     Dosage: 15 MG, BID
     Dates: start: 20131016, end: 20131029
  5. PREDONINE [Concomitant]
     Active Substance: PREDNISOLONE\PREDNISOLONE ACETATE\PREDNISOLONE SODIUM SUCCINATE
     Dosage: 20 MG, QD
     Dates: start: 20131220, end: 20131226
  6. PREDONINE [Concomitant]
     Active Substance: PREDNISOLONE\PREDNISOLONE ACETATE\PREDNISOLONE SODIUM SUCCINATE
     Dosage: 2.5 MG, QD
     Dates: start: 20140307, end: 20140321
  7. METHYCOBAL [Concomitant]
     Active Substance: METHYLCOBALAMIN
     Dosage: 500 ?G, TID
     Route: 048
     Dates: start: 20140117, end: 20140120
  8. ATOVAQUONE. [Suspect]
     Active Substance: ATOVAQUONE
     Indication: PNEUMOCYSTIS JIROVECII PNEUMONIA
     Dosage: 750 MG, BID
     Route: 048
     Dates: start: 20131228, end: 20140111
  9. ATOVAQUONE. [Suspect]
     Active Substance: ATOVAQUONE
     Indication: ANTIFUNGAL PROPHYLAXIS
     Dosage: 1500 MG, QD
     Route: 048
     Dates: start: 20140112, end: 20140315
  10. PREDONINE [Concomitant]
     Active Substance: PREDNISOLONE\PREDNISOLONE ACETATE\PREDNISOLONE SODIUM SUCCINATE
     Indication: COLITIS ULCERATIVE
     Dosage: 15 MG, BID
     Route: 048
     Dates: start: 20131009, end: 20131015
  11. PREDONINE [Concomitant]
     Active Substance: PREDNISOLONE\PREDNISOLONE ACETATE\PREDNISOLONE SODIUM SUCCINATE
     Dosage: 5 MG, QD
     Dates: start: 20140227, end: 20140306
  12. MAGMITT [Concomitant]
     Active Substance: MAGNESIUM OXIDE
     Indication: COLITIS ULCERATIVE
     Dosage: 660 MG, TID
     Route: 048
     Dates: start: 20131218, end: 20140109
  13. VANCOMYCIN HYDROCHLORIDE. [Suspect]
     Active Substance: VANCOMYCIN HYDROCHLORIDE
     Dosage: 1 G, QD
     Dates: start: 20140102, end: 20140103
  14. PREDONINE [Concomitant]
     Active Substance: PREDNISOLONE\PREDNISOLONE ACETATE\PREDNISOLONE SODIUM SUCCINATE
     Dosage: 10 MG, BID
     Dates: start: 20131030, end: 20131104
  15. PREDONINE [Concomitant]
     Active Substance: PREDNISOLONE\PREDNISOLONE ACETATE\PREDNISOLONE SODIUM SUCCINATE
     Dosage: 15 MG, QD
     Dates: start: 20131126, end: 20131202
  16. PREDONINE [Concomitant]
     Active Substance: PREDNISOLONE\PREDNISOLONE ACETATE\PREDNISOLONE SODIUM SUCCINATE
     Dosage: 10 MG, QD
     Dates: start: 20140213, end: 20140226
  17. IMURAN [Suspect]
     Active Substance: AZATHIOPRINE
     Indication: COLITIS ULCERATIVE
     Dosage: 50 MG, QD
     Route: 048
     Dates: start: 20130914, end: 20140107
  18. PREDONINE [Concomitant]
     Active Substance: PREDNISOLONE\PREDNISOLONE ACETATE\PREDNISOLONE SODIUM SUCCINATE
     Indication: COLITIS ULCERATIVE
     Dosage: 40 MG, QD
     Route: 042
     Dates: start: 20130914, end: 20131008
  19. PREDONINE [Concomitant]
     Active Substance: PREDNISOLONE\PREDNISOLONE ACETATE\PREDNISOLONE SODIUM SUCCINATE
     Dosage: 20 MG, BID
     Dates: start: 20140111, end: 20140115
  20. PREDONINE [Concomitant]
     Active Substance: PREDNISOLONE\PREDNISOLONE ACETATE\PREDNISOLONE SODIUM SUCCINATE
     Dosage: 30 MG, QD
     Dates: start: 20140116, end: 20140122
  21. PREDONINE [Concomitant]
     Active Substance: PREDNISOLONE\PREDNISOLONE ACETATE\PREDNISOLONE SODIUM SUCCINATE
     Dosage: 20 MG, QD
     Dates: start: 20140130, end: 20140205
  22. PENTASA [Concomitant]
     Active Substance: MESALAMINE
     Indication: COLITIS ULCERATIVE
     Dosage: 1 G, QD
  23. ROHYPNOL [Concomitant]
     Active Substance: FLUNITRAZEPAM
     Dosage: 1 DF, QD
     Route: 048
  24. VANCOMYCIN HYDROCHLORIDE. [Suspect]
     Active Substance: VANCOMYCIN HYDROCHLORIDE
     Dosage: 1 G, BID
     Dates: start: 20140104, end: 20140118
  25. PREDONINE [Concomitant]
     Active Substance: PREDNISOLONE\PREDNISOLONE ACETATE\PREDNISOLONE SODIUM SUCCINATE
     Dosage: 25 MG, BID
     Dates: start: 20131227, end: 20140110
  26. PREDONINE [Concomitant]
     Active Substance: PREDNISOLONE\PREDNISOLONE ACETATE\PREDNISOLONE SODIUM SUCCINATE
     Dosage: 20 MG, QD
     Dates: start: 20131105, end: 20131125
  27. PREDONINE [Concomitant]
     Active Substance: PREDNISOLONE\PREDNISOLONE ACETATE\PREDNISOLONE SODIUM SUCCINATE
     Dosage: 15 MG, QD
     Dates: start: 20140206, end: 20140212
  28. NEXIUM [Concomitant]
     Active Substance: ESOMEPRAZOLE MAGNESIUM
     Indication: COLITIS ULCERATIVE
     Dosage: 20 MG, QD
     Route: 048
     Dates: start: 20130924
  29. VANCOMYCIN HYDROCHLORIDE. [Suspect]
     Active Substance: VANCOMYCIN HYDROCHLORIDE
     Dosage: 1 G, QD
     Route: 042
     Dates: start: 20140119, end: 20140119
  30. PREDONINE [Concomitant]
     Active Substance: PREDNISOLONE\PREDNISOLONE ACETATE\PREDNISOLONE SODIUM SUCCINATE
     Dosage: 10 MG, QD
     Dates: start: 20131203, end: 20131219

REACTIONS (2)
  - Infection susceptibility increased [Unknown]
  - Toxic skin eruption [Recovering/Resolving]

NARRATIVE: CASE EVENT DATE: 20140118
